FAERS Safety Report 9442946 (Version 1)
Quarter: 2013Q3

REPORT INFORMATION
  Report Type: Spontaneous
  Country: GB (occurrence: GB)
  Receive Date: 20130806
  Receipt Date: 20130806
  Transmission Date: 20140515
  Serious: Yes (Disabling)
  Sender: FDA-Public Use
  Company Number: GB-WATSON-2013-13603

PATIENT
  Age: 56 Year
  Sex: Female

DRUGS (6)
  1. NAPROXEN (UNKNOWN) [Suspect]
     Indication: ARTHRALGIA
     Dosage: 500 MG, UNKNOWN
     Route: 048
     Dates: start: 20130610, end: 20130612
  2. REQUIP [Concomitant]
     Indication: PRODUCT USED FOR UNKNOWN INDICATION
     Dosage: LONGSTANDING USE
     Route: 065
  3. ANASTROZOLE [Concomitant]
     Indication: BREAST CANCER
     Dosage: UNK, UNKNOWN
     Route: 065
     Dates: start: 2011
  4. CO-CARELDOPA [Concomitant]
     Indication: PARKINSON^S DISEASE
     Dosage: 12.5/50MG, LONGSTANDING
     Route: 065
  5. BISACODYL [Concomitant]
     Indication: CONSTIPATION
     Dosage: 5 MG, DAILY
     Route: 065
  6. TRAMADOL [Concomitant]
     Indication: ARTHRALGIA
     Dosage: ONE CAPSULE AS REQUIRED
     Route: 065

REACTIONS (2)
  - Hypokinesia [Recovered/Resolved]
  - Freezing phenomenon [Recovered/Resolved]
